FAERS Safety Report 17078301 (Version 4)
Quarter: 2020Q1

REPORT INFORMATION
  Report Type: Spontaneous
  Country: JP (occurrence: JP)
  Receive Date: 20191126
  Receipt Date: 20200122
  Transmission Date: 20200409
  Serious: Yes (Death, Hospitalization, Other)
  Sender: FDA-Public Use
  Company Number: JP-DSJP-DSJ-2019-146199

PATIENT

DRUGS (18)
  1. TAKECAB [Concomitant]
     Active Substance: VONOPRAZAN FUMURATE
     Indication: PERITONITIS
     Dosage: 10 MG, QD
     Route: 048
     Dates: start: 20191106, end: 20191117
  2. DOPAMINE HYDROCHLORIDE. [Concomitant]
     Active Substance: DOPAMINE HYDROCHLORIDE
     Indication: BLOOD PRESSURE DECREASED
     Dosage: UNK
     Route: 042
     Dates: start: 20191118, end: 20191119
  3. ISOTONIC SODIUM CHLORIDE SOLUTION [Concomitant]
     Active Substance: SODIUM CHLORIDE
     Indication: PNEUMONIA ASPIRATION
     Dosage: 100 ML, BID
     Route: 042
     Dates: start: 20191118
  4. MEROPENEM                          /01250502/ [Concomitant]
     Active Substance: MEROPENEM
     Indication: PNEUMONIA ASPIRATION
     Dosage: 1.0 G, BID
     Route: 042
     Dates: start: 20191101, end: 20191113
  5. MEROPENEM                          /01250502/ [Concomitant]
     Active Substance: MEROPENEM
     Dosage: 1.0 G, BID
     Route: 042
     Dates: start: 20191118
  6. BFLUID [Concomitant]
     Active Substance: AMINO ACIDS\DEXTROSE\ELECTROLYTES NOS\VITAMINS
     Indication: DEHYDRATION
  7. LIXIANA OD TABLETS 30MG [Suspect]
     Active Substance: EDOXABAN TOSYLATE
     Dosage: 30 MG, QD
     Route: 048
     Dates: start: 20191106, end: 20191117
  8. TAKECAB [Concomitant]
     Active Substance: VONOPRAZAN FUMURATE
     Dosage: 10 MG, QD
     Route: 048
     Dates: start: 20191120
  9. FLAGYL [Concomitant]
     Active Substance: METRONIDAZOLE\METRONIDAZOLE HYDROCHLORIDE
     Dosage: 250 MG, QID
     Route: 048
     Dates: start: 20191127
  10. LIXIANA OD TABLETS 30MG [Suspect]
     Active Substance: EDOXABAN TOSYLATE
     Indication: ATRIAL FIBRILLATION
     Dosage: 30 MG, QD
     Route: 048
     Dates: start: 20190619, end: 20191030
  11. TAKECAB [Concomitant]
     Active Substance: VONOPRAZAN FUMURATE
     Indication: PANCREATIC CYST
     Dosage: 10 MG, QD
     Route: 048
     Dates: start: 20190723, end: 20191030
  12. SOLYUGEN G [Concomitant]
     Indication: DEHYDRATION
  13. VITAMEDIN INTRAVENOUS [Concomitant]
     Active Substance: CYANOCOBALAMIN\PYRIDOXINE HYDROCHLORIDE\THIAMINE
     Indication: CLOSTRIDIUM DIFFICILE COLITIS
     Dosage: 1 DF, QD
     Route: 042
     Dates: start: 20191031
  14. FLAGYL [Concomitant]
     Active Substance: METRONIDAZOLE\METRONIDAZOLE HYDROCHLORIDE
     Indication: CLOSTRIDIUM DIFFICILE COLITIS
     Dosage: 250 MG, QID
     Route: 048
     Dates: start: 20191106, end: 20191118
  15. BFLUID [Concomitant]
     Active Substance: AMINO ACIDS\DEXTROSE\ELECTROLYTES NOS\VITAMINS
     Indication: CLOSTRIDIUM DIFFICILE COLITIS
     Dosage: 500 ML, QD
     Route: 042
     Dates: start: 20191031
  16. LIXIANA OD TABLETS 30MG [Suspect]
     Active Substance: EDOXABAN TOSYLATE
     Dosage: 30 MG, QD
     Route: 048
     Dates: start: 20191120
  17. SOLYUGEN G [Concomitant]
     Indication: CLOSTRIDIUM DIFFICILE COLITIS
     Dosage: 500 ML, QD
     Route: 042
     Dates: start: 20191107
  18. VITAMEDIN INTRAVENOUS [Concomitant]
     Active Substance: CYANOCOBALAMIN\PYRIDOXINE HYDROCHLORIDE\THIAMINE
     Indication: DEHYDRATION

REACTIONS (9)
  - Sepsis [Recovered/Resolved]
  - Clostridium difficile colitis [Unknown]
  - Anaemia [Recovering/Resolving]
  - Disseminated intravascular coagulation [Recovered/Resolved]
  - Mouth haemorrhage [Unknown]
  - Insomnia [Unknown]
  - Dehydration [Unknown]
  - Anaemia [Recovering/Resolving]
  - Pneumonia aspiration [Fatal]

NARRATIVE: CASE EVENT DATE: 20190924
